FAERS Safety Report 9496307 (Version 1)
Quarter: 2013Q3

REPORT INFORMATION
  Report Type: Spontaneous
  Country: US (occurrence: US)
  Receive Date: 20130904
  Receipt Date: 20130904
  Transmission Date: 20140515
  Serious: No
  Sender: FDA-Public Use
  Company Number: US-BAYER-2013-106485

PATIENT
  Age: 29 Year
  Sex: Female
  Weight: 83.9 kg

DRUGS (2)
  1. ALEVE TABLET [Suspect]
     Indication: BACK PAIN
     Dosage: 2 DF, BID
     Route: 048
     Dates: start: 201308, end: 20130821
  2. ALEVE TABLET [Suspect]
     Indication: ABDOMINAL PAIN UPPER
     Dosage: 2 DF, BID
     Route: 048
     Dates: start: 201308, end: 20130821

REACTIONS (2)
  - Drug ineffective [None]
  - Extra dose administered [None]
